FAERS Safety Report 4575075-X (Version None)
Quarter: 2005Q1

REPORT INFORMATION
  Report Type: 
  Country: None (occurrence: None)
  Receive Date: 20050208
  Receipt Date: 20041221
  Transmission Date: 20050727
  Serious: Yes (Other)
  Sender: FDA-Public Use
  Company Number: BE-GLAXOSMITHKLINE-B0363799A

PATIENT
  Age: 15 Year
  Sex: Female

DRUGS (4)
  1. LAMICTAL [Suspect]
     Indication: GRAND MAL CONVULSION
     Route: 048
     Dates: start: 20031130, end: 20041221
  2. EUTHYROX [Concomitant]
     Indication: HYPOTHYROIDISM
     Dosage: 75MG PER DAY
     Route: 048
     Dates: start: 20031101
  3. BEVIPLEX [Concomitant]
     Route: 048
  4. LEVOTHYROXINE [Concomitant]
     Route: 048

REACTIONS (7)
  - CONVULSION [None]
  - DIPLOPIA [None]
  - EPILEPSY [None]
  - EXCESSIVE OCULAR CONVERGENCE [None]
  - FATIGUE [None]
  - MENSTRUAL DISORDER [None]
  - MUSCLE SPASMS [None]
